FAERS Safety Report 5858891-3 (Version None)
Quarter: 2008Q3

REPORT INFORMATION
  Report Type: 
  Country: None (occurrence: None)
  Receive Date: 20080825
  Receipt Date: 20080811
  Transmission Date: 20090109
  Serious: Yes (Other)
  Sender: FDA-Public Use
  Company Number: 2008AL005159

PATIENT
  Age: 49 Year
  Sex: Female
  Weight: 62.5964 kg

DRUGS (2)
  1. DIGOXIN [Suspect]
     Indication: CARDIAC MURMUR
     Dosage: 0.25MG, BID, PO
     Route: 048
  2. TOPROL-XL [Concomitant]

REACTIONS (9)
  - ASTHENIA [None]
  - CARDIAC FAILURE [None]
  - CARDIOACTIVE DRUG LEVEL INCREASED [None]
  - FATIGUE [None]
  - HEART RATE DECREASED [None]
  - MIGRAINE [None]
  - OEDEMA PERIPHERAL [None]
  - SWELLING FACE [None]
  - VISUAL IMPAIRMENT [None]
